FAERS Safety Report 6276032 (Version 8)
Quarter: 2013Q2

REPORT INFORMATION
  Report Type: Spontaneous
  Country: US (occurrence: US)
  Receive Date: 20070330
  Receipt Date: 20130423
  Transmission Date: 20140414
  Serious: Yes (Death)
  Sender: FDA-Public Use
  Company Number: US-JNJFOC-20070305451

PATIENT
  Age: 26 Year
  Sex: Male
  Weight: 80 kg

DRUGS (12)
  1. DURAGESIC [Suspect]
     Indication: PAIN
     Route: 062
     Dates: start: 20020529
  2. DURAGESIC [Suspect]
     Indication: PAIN
     Route: 062
     Dates: start: 20040927
  3. DURAGESIC [Suspect]
     Indication: PAIN
     Route: 062
     Dates: start: 20020522, end: 20020611
  4. DURAGESIC [Suspect]
     Indication: PAIN
     Route: 062
     Dates: start: 20020423, end: 20020522
  5. NORCO [Suspect]
     Indication: PAIN
     Route: 048
  6. MYLAN FENTANYL TRANSDERMAL SYSTEM [Suspect]
     Indication: PRODUCT USED FOR UNKNOWN INDICATION
     Route: 065
  7. AVANDIA [Concomitant]
     Indication: DIABETES MELLITUS
  8. EFFEXOR XR [Concomitant]
     Indication: DEPRESSION
  9. XANAX [Concomitant]
     Indication: ANXIETY
     Route: 048
  10. WELLBUTRIN [Concomitant]
     Indication: DEPRESSION
  11. PEPCID [Concomitant]
     Indication: GASTROOESOPHAGEAL REFLUX DISEASE
  12. INSULIN PUMP [Concomitant]

REACTIONS (4)
  - Toxicity to various agents [Fatal]
  - Device leakage [Fatal]
  - Urticaria [Recovered/Resolved]
  - Pruritus [Recovered/Resolved]
